FAERS Safety Report 7680798-X (Version None)
Quarter: 2011Q3

REPORT INFORMATION
  Report Type: 
  Country: None (occurrence: None)
  Receive Date: 20110812
  Receipt Date: 20110809
  Transmission Date: 20111222
  Serious: Yes (Life-Threatening)
  Sender: FDA-Public Use
  Company Number: DE-MERCK-1105DEU00119

PATIENT
  Age: 80 Year
  Sex: Female
  Weight: 65 kg

DRUGS (16)
  1. CHOLECALCIFEROL [Concomitant]
     Route: 065
     Dates: start: 20101001
  2. RAMIPRIL [Concomitant]
     Indication: HYPERTENSION
     Route: 048
     Dates: start: 20061201
  3. VALPROATE SODIUM [Concomitant]
     Indication: SYNCOPE
     Route: 048
  4. FOSAMAX [Suspect]
     Route: 048
     Dates: start: 20101001
  5. ISOSORBIDE DINITRATE [Concomitant]
     Indication: HYPERTENSION
     Route: 048
     Dates: start: 20050401
  6. MARCUMAR [Suspect]
     Indication: ATRIAL FIBRILLATION
     Route: 048
     Dates: start: 20080401, end: 20101108
  7. BROMAZEPAM [Concomitant]
     Indication: INSOMNIA
     Route: 048
     Dates: start: 20090601
  8. LEVOTHYROXINE SODIUM [Concomitant]
     Indication: GOITRE
     Route: 048
     Dates: start: 20080201
  9. HYDROCHLOROTHIAZIDE AND OLMESARTAN MEDOXOMIL [Concomitant]
     Indication: HYPERTENSION
     Route: 048
     Dates: start: 20070101
  10. FUROSEMIDE [Concomitant]
     Route: 048
     Dates: start: 20100501
  11. MARCUMAR [Suspect]
     Route: 048
     Dates: start: 20101111
  12. BISOPROLOL [Concomitant]
     Route: 048
     Dates: start: 20070901
  13. BISOPROLOL [Concomitant]
     Route: 048
  14. FUROSEMIDE [Concomitant]
     Indication: OEDEMA PERIPHERAL
     Route: 048
     Dates: start: 20100301
  15. AMLODIPINE [Concomitant]
     Indication: HYPERTENSION
     Route: 048
     Dates: start: 20070601
  16. DOXEPIN HYDROCHLORIDE [Concomitant]
     Indication: INSOMNIA
     Route: 048
     Dates: start: 20100801

REACTIONS (2)
  - DRUG INTERACTION [None]
  - DRUG EFFECT INCREASED [None]
